FAERS Safety Report 9234203 (Version 1)
Quarter: 2013Q1

REPORT INFORMATION
  Report Type: Spontaneous
  Country: US (occurrence: None)
  Receive Date: 20121031
  Receipt Date: 20121031
  Transmission Date: 20140127
  Serious: No
  Sender: FDA-Public Use
  Company Number: PHEH2012US015413

PATIENT
  Sex: Female
  Weight: 59 kg

DRUGS (5)
  1. GILENYA (FTY) CAPSULE, 0.5MG [Suspect]
     Route: 048
  2. LIPITOR (ATORVASTATIN CALCIUM) TABLET [Concomitant]
  3. CALCIUM (CALCIUM) TABLET [Concomitant]
  4. MULTIVITAMINS (ASCORBIC ACID, ERGOCALCIFEROL, FOLIC ACID, NICOTINAMIDE, PANTHENOL, RETINOL, RIBOFLAVIN, THIAMINE HYDROCHLORIDE) CAPSULE [Concomitant]
  5. VITAMIN D (ERGOCALCIFEROL) [Suspect]

REACTIONS (4)
  - Muscle spasms [None]
  - Pain in extremity [None]
  - Blood cholesterol increased [None]
  - Hypoaesthesia [None]
